FAERS Safety Report 19180531 (Version 2)
Quarter: 2021Q2

REPORT INFORMATION
  Report Type: Spontaneous
  Country: US (occurrence: US)
  Receive Date: 20210426
  Receipt Date: 20210521
  Transmission Date: 20210717
  Serious: Yes (Other)
  Sender: FDA-Public Use
  Company Number: US-GW PHARMA-202104USGW01903

PATIENT

DRUGS (2)
  1. EPIDIOLEX [Suspect]
     Active Substance: CANNABIDIOL
     Indication: SEIZURE
     Dosage: 375 MG
     Route: 048
     Dates: start: 201911
  2. EPIDIOLEX [Suspect]
     Active Substance: CANNABIDIOL
     Dosage: DOSE INCREASED
     Route: 048

REACTIONS (3)
  - Seizure [Not Recovered/Not Resolved]
  - Generalised tonic-clonic seizure [Unknown]
  - Fall [Unknown]
